FAERS Safety Report 20599406 (Version 1)
Quarter: 2022Q1

REPORT INFORMATION
  Report Type: Other
  Country: CA (occurrence: None)
  Receive Date: 20220315
  Receipt Date: 20220315
  Transmission Date: 20220423
  Serious: Yes (Hospitalization)
  Sender: FDA-Public Use
  Company Number: CA-ROCHE-3011948

PATIENT
  Age: 79 Year
  Sex: Female

DRUGS (9)
  1. ACTEMRA [Suspect]
     Active Substance: TOCILIZUMAB
     Indication: Rheumatoid arthritis
     Dosage: DRUG DOSE FIRST ADMINISTERED IS 448 MG MILLIGRAM(S)MOREDOSAGEINFO IS NO PIRS/BATCH/LOT PROVIDED
     Route: 042
     Dates: start: 20140702, end: 20150312
  2. ACTEMRA [Suspect]
     Active Substance: TOCILIZUMAB
     Dosage: DRUG DOSE FIRST ADMINISTERED IS 432 MG MILLIGRAM(S)
     Route: 042
     Dates: start: 20150824, end: 20200915
  3. ACTEMRA [Suspect]
     Active Substance: TOCILIZUMAB
     Dosage: DRUG DOSE FIRST ADMINISTERED IS 432 MG MILLIGRAM(S)
     Route: 042
     Dates: start: 20201215
  4. METHOTREXATE [Concomitant]
     Active Substance: METHOTREXATE
  5. ATIVAN [Concomitant]
     Active Substance: LORAZEPAM
  6. ADALAT [Concomitant]
     Active Substance: NIFEDIPINE
  7. SPIRIVA [Concomitant]
     Active Substance: TIOTROPIUM BROMIDE MONOHYDRATE
  8. TYLENOL [Concomitant]
     Active Substance: ACETAMINOPHEN
  9. VENTOLIN [Concomitant]
     Active Substance: ALBUTEROL SULFATE

REACTIONS (2)
  - Skin infection [Unknown]
  - Infection [Unknown]

NARRATIVE: CASE EVENT DATE: 20211101
